FAERS Safety Report 8446425-9 (Version None)
Quarter: 2012Q2

REPORT INFORMATION
  Report Type: 
  Country: None (occurrence: None)
  Receive Date: 20120618
  Receipt Date: 20120316
  Transmission Date: 20120825
  Serious: No
  Sender: FDA-Public Use
  Company Number: US-TEVA-328640USA

PATIENT
  Sex: Female
  Weight: 37.228 kg

DRUGS (1)
  1. ACTIQ [Suspect]
     Indication: CROHN'S DISEASE
     Route: 002
     Dates: start: 20070101

REACTIONS (3)
  - DRUG DEPENDENCE [None]
  - WEIGHT DECREASED [None]
  - OFF LABEL USE [None]
